FAERS Safety Report 14860817 (Version 1)
Quarter: 2018Q2

REPORT INFORMATION
  Report Type: Spontaneous
  Country: US (occurrence: US)
  Receive Date: 20180421
  Receipt Date: 20180421
  Transmission Date: 20180711
  Serious: Yes (Hospitalization)
  Sender: FDA-Public Use
  Company Number: None

PATIENT
  Age: 69 Year
  Sex: Female
  Weight: 58.5 kg

DRUGS (18)
  1. LEVOTHYROXINE. [Concomitant]
     Active Substance: LEVOTHYROXINE
  2. CURCUMIN PM [Concomitant]
  3. ^FAT BURNER^ [Concomitant]
  4. HYLANDS ^SLEEP^ [Concomitant]
  5. ^STAY SLIM^ [Concomitant]
  6. LISINOPRIL. [Concomitant]
     Active Substance: LISINOPRIL
  7. MELATONIN [Concomitant]
     Active Substance: MELATONIN
  8. KYOLIC-CANDIDA CLEANSE AND DIGESTION AND ALOE [Concomitant]
  9. BELSOMRA [Suspect]
     Active Substance: SUVOREXANT
     Indication: SLEEP DISORDER
     Dosage: ?          QUANTITY:30 TABLET(S);?
     Route: 048
  10. PROZAC [Concomitant]
     Active Substance: FLUOXETINE HYDROCHLORIDE
  11. CALCIUM [Concomitant]
     Active Substance: CALCIUM
  12. MULTI-VITAMINS [Concomitant]
  13. L-THEANINE [Concomitant]
     Active Substance: DIETARY SUPPLEMENT
  14. CURCUMIN [Concomitant]
     Active Substance: CURCUMIN
  15. LIGAPLEX [Concomitant]
  16. CLARITIN [Concomitant]
     Active Substance: LORATADINE
  17. HYLANDS ^CALMS FORTE^ [Concomitant]
  18. HYLANDS ^LEG CRAMPS^ [Concomitant]

REACTIONS (1)
  - Drug dependence [None]

NARRATIVE: CASE EVENT DATE: 20180412
